FAERS Safety Report 7203592-2 (Version None)
Quarter: 2010Q4

REPORT INFORMATION
  Report Type: 
  Country: None (occurrence: None)
  Receive Date: 20101228
  Receipt Date: 20101228
  Transmission Date: 20110411
  Serious: No
  Sender: FDA-Public Use
  Company Number: None

PATIENT
  Sex: Female
  Weight: 77.6 kg

DRUGS (1)
  1. DABIGATRAN 150MG BOEHRINGER INGELHEIM [Suspect]
     Indication: CEREBROVASCULAR ACCIDENT PROPHYLAXIS
     Dosage: 150MG Q12H PO
     Route: 048
     Dates: start: 20101125, end: 20101218

REACTIONS (1)
  - CEREBROVASCULAR ACCIDENT [None]
